FAERS Safety Report 26190466 (Version 1)
Quarter: 2025Q4

REPORT INFORMATION
  Report Type: Spontaneous
  Country: US (occurrence: US)
  Receive Date: 20251223
  Receipt Date: 20251223
  Transmission Date: 20260117
  Serious: Yes (Other)
  Sender: AMGEN
  Company Number: US-AMGEN-USASP2025249579

PATIENT
  Age: 27 Year
  Sex: Female

DRUGS (1)
  1. PREDNISONE [Suspect]
     Active Substance: PREDNISONE
     Indication: Acute motor axonal neuropathy
     Dosage: 20 MILLIGRAM, QD (FOR 5 DAYS)
     Route: 048

REACTIONS (2)
  - Miller Fisher syndrome [Unknown]
  - Off label use [Unknown]
